FAERS Safety Report 4452104-5 (Version None)
Quarter: 2004Q3

REPORT INFORMATION
  Report Type: 
  Country: None (occurrence: None)
  Receive Date: 20040915
  Receipt Date: 20040915
  Transmission Date: 20050211
  Serious: No
  Sender: FDA-Public Use
  Company Number: None

PATIENT
  Age: 82 Year
  Sex: Female
  Weight: 63.5036 kg

DRUGS (1)
  1. TIMOPTIC [Suspect]
     Indication: GLAUCOMA
     Dosage: EYE
     Route: 047

REACTIONS (2)
  - EYE REDNESS [None]
  - PHARMACEUTICAL PRODUCT COMPLAINT [None]
